FAERS Safety Report 19193569 (Version 1)
Quarter: 2021Q2

REPORT INFORMATION
  Report Type: Spontaneous
  Country: US (occurrence: US)
  Receive Date: 20210429
  Receipt Date: 20210429
  Transmission Date: 20210717
  Serious: No
  Sender: FDA-Public Use
  Company Number: US-BEH-2021130772

PATIENT
  Sex: Female
  Weight: 94.79 kg

DRUGS (4)
  1. PRIVIGEN [Suspect]
     Active Substance: HUMAN IMMUNOGLOBULIN G
     Indication: POLYNEUROPATHY
     Dosage: 50 GRAM ON DAY 1 AND 2, Q3W
     Route: 042
     Dates: start: 202010
  2. ZINC. [Concomitant]
     Active Substance: ZINC
  3. VITAMINS NOS [Concomitant]
     Active Substance: VITAMINS
  4. PRIVIGEN [Suspect]
     Active Substance: HUMAN IMMUNOGLOBULIN G
     Dosage: 50 GRAM ON DAY 1 AND 2, Q3W
     Route: 042
     Dates: start: 202011

REACTIONS (6)
  - No adverse event [Unknown]
  - Off label use [Unknown]
  - Pruritus [Unknown]
  - Headache [Unknown]
  - Nausea [Unknown]
  - Weight decreased [Unknown]
